FAERS Safety Report 9263520 (Version 1)
Quarter: 2013Q2

REPORT INFORMATION
  Report Type: Report from Study
  Country: AU (occurrence: AU)
  Receive Date: 20130430
  Receipt Date: 20130430
  Transmission Date: 20140414
  Serious: Yes (Other)
  Sender: FDA-Public Use
  Company Number: AU-ROCHE-1219859

PATIENT
  Age: 49 Year
  Sex: Male
  Weight: 70 kg

DRUGS (5)
  1. ZELBORAF [Suspect]
     Indication: METASTATIC MALIGNANT MELANOMA
     Route: 048
     Dates: start: 20121224, end: 20130103
  2. ZELBORAF [Suspect]
     Route: 048
     Dates: start: 20130107, end: 20130122
  3. MS CONTIN [Concomitant]
     Indication: PAIN
     Route: 048
  4. ORDINE [Concomitant]
     Indication: PAIN
     Route: 048
  5. GABAPENTIN [Concomitant]
     Indication: PAIN
     Dosage: DOSE-300/600 MG
     Route: 048

REACTIONS (2)
  - Pancreatic carcinoma [Not Recovered/Not Resolved]
  - Rash [Recovered/Resolved]
